FAERS Safety Report 17896107 (Version 3)
Quarter: 2020Q4

REPORT INFORMATION
  Report Type: Spontaneous
  Country: CA (occurrence: CA)
  Receive Date: 20200615
  Receipt Date: 20201127
  Transmission Date: 20210113
  Serious: Yes (Hospitalization, Other)
  Sender: FDA-Public Use
  Company Number: CA-SA-2020SA148694

PATIENT

DRUGS (8)
  1. METHOTREXATE. [Concomitant]
     Active Substance: METHOTREXATE
     Dosage: 0.6 ML, QW; INJECTION
     Dates: start: 20191115
  2. METHOTREXATE. [Suspect]
     Active Substance: METHOTREXATE
     Indication: PRODUCT USED FOR UNKNOWN INDICATION
     Dosage: UNK
     Dates: start: 1979
  3. ARTHROTEC [Concomitant]
     Active Substance: DICLOFENAC SODIUM\MISOPROSTOL
     Dosage: 75 MG, BID
     Route: 048
     Dates: start: 201910
  4. HUMIRA [Concomitant]
     Active Substance: ADALIMUMAB
     Dosage: UNK; FORM: SOUTION SUBCUTANEOUS
     Route: 058
  5. METHOTREXATE. [Concomitant]
     Active Substance: METHOTREXATE
     Dosage: UNK
  6. HUMIRA [Concomitant]
     Active Substance: ADALIMUMAB
     Dosage: UNK
     Dates: start: 1999, end: 2015
  7. KEVZARA [Suspect]
     Active Substance: SARILUMAB
     Indication: PRODUCT USED FOR UNKNOWN INDICATION
     Dosage: 1 DF, QOW (CYCLIC)
     Dates: start: 2015, end: 201906
  8. HUMIRA [Concomitant]
     Active Substance: ADALIMUMAB
     Dosage: UNK

REACTIONS (10)
  - Pharyngitis streptococcal [Unknown]
  - Hypersomnia [Not Recovered/Not Resolved]
  - Oropharyngeal pain [Unknown]
  - Diverticulitis [Unknown]
  - Fungal infection [Unknown]
  - White blood cell count increased [Unknown]
  - Fatigue [Not Recovered/Not Resolved]
  - Malaise [Not Recovered/Not Resolved]
  - Spinal stenosis [Unknown]
  - Infection [Unknown]

NARRATIVE: CASE EVENT DATE: 2002
